FAERS Safety Report 16334565 (Version 1)
Quarter: 2019Q2

REPORT INFORMATION
  Report Type: Report from Study
  Country: US (occurrence: US)
  Receive Date: 20190520
  Receipt Date: 20190520
  Transmission Date: 20190711
  Serious: Yes (Other)
  Sender: FDA-Public Use
  Company Number: US-PFIZER INC-2019205666

PATIENT
  Age: 64 Year
  Sex: Female
  Weight: 59 kg

DRUGS (2)
  1. RESLIZUMAB [Suspect]
     Active Substance: RESLIZUMAB
     Indication: DRUG LEVEL
     Dosage: 5 MG/KG, 1 IN 1 TOTAL
     Route: 058
     Dates: start: 20190213, end: 20190213
  2. LIPITOR [Suspect]
     Active Substance: ATORVASTATIN CALCIUM
     Indication: HYPERCHOLESTEROLAEMIA

REACTIONS (1)
  - Hepatitis viral [Recovered/Resolved]

NARRATIVE: CASE EVENT DATE: 20190326
